FAERS Safety Report 21500688 (Version 1)
Quarter: 2022Q4

REPORT INFORMATION
  Report Type: Spontaneous
  Country: FR (occurrence: FR)
  Receive Date: 20221025
  Receipt Date: 20221025
  Transmission Date: 20230113
  Serious: Yes (Hospitalization)
  Sender: FDA-Public Use
  Company Number: None

PATIENT
  Age: 55 Year
  Sex: Female
  Weight: 60.200 kg

DRUGS (14)
  1. ETOPOSIDE PHOSPHATE [Suspect]
     Active Substance: ETOPOSIDE PHOSPHATE
     Indication: Bronchial carcinoma
     Dosage: 176 MG FROM D1 TO D3?DAILY DOSE: 176 MILLIGRAM
     Route: 042
     Dates: start: 20220617, end: 20220619
  2. ETOPOSIDE PHOSPHATE [Suspect]
     Active Substance: ETOPOSIDE PHOSPHATE
     Indication: Bronchial carcinoma
     Dosage: PLANNED 176 MG OVER 10 MINUTES
     Route: 042
     Dates: start: 20220711, end: 20220711
  3. CARBOPLATIN [Concomitant]
     Active Substance: CARBOPLATIN
     Dosage: 730 MG AT D1?DAILY DOSE: 730 MILLIGRAM
     Dates: start: 20220617, end: 20220617
  4. IMFINZI [Concomitant]
     Active Substance: DURVALUMAB
     Dosage: 1500 MG D1?DAILY DOSE: 1500 MILLIGRAM
     Dates: start: 20220617, end: 20220617
  5. IMFINZI [Concomitant]
     Active Substance: DURVALUMAB
     Dosage: 1500 MG D1?DAILY DOSE: 1500 MILLIGRAM
     Dates: start: 20220711, end: 20220711
  6. PANTOPRAZOLE [Concomitant]
     Active Substance: PANTOPRAZOLE
  7. ZOPICLONE [Concomitant]
     Active Substance: ZOPICLONE
  8. DOLIPRANE [Concomitant]
     Active Substance: ACETAMINOPHEN
  9. METHYLPREDNISOLONE [Concomitant]
     Active Substance: METHYLPREDNISOLONE
     Dosage: 60 MG
     Dates: start: 20220617, end: 20220617
  10. METHYLPREDNISOLONE [Concomitant]
     Active Substance: METHYLPREDNISOLONE
     Dosage: 60 MG
     Dates: start: 20220711, end: 20220711
  11. KYTRIL [Concomitant]
     Active Substance: GRANISETRON HYDROCHLORIDE
     Dosage: 3 MG IV?DAILY DOSE: 3 MILLIGRAM
     Route: 042
     Dates: start: 20220617, end: 20220617
  12. KYTRIL [Concomitant]
     Active Substance: GRANISETRON HYDROCHLORIDE
     Dosage: 3 MG IV?DAILY DOSE: 3 MILLIGRAM
     Route: 042
     Dates: start: 20220711, end: 20220711
  13. EMEND [Concomitant]
     Active Substance: APREPITANT
     Dates: start: 20220617, end: 20220617
  14. EMEND [Concomitant]
     Active Substance: APREPITANT
     Dates: start: 20220711, end: 20220711

REACTIONS (1)
  - Bronchospasm [Recovered/Resolved]

NARRATIVE: CASE EVENT DATE: 20220711
